FAERS Safety Report 23045128 (Version 1)
Quarter: 2023Q4

REPORT INFORMATION
  Report Type: Spontaneous
  Country: US (occurrence: US)
  Receive Date: 20231009
  Receipt Date: 20231009
  Transmission Date: 20240110
  Serious: Yes (Other)
  Sender: FDA-Public Use
  Company Number: US-AMNEAL-2023-AMRX-03419

PATIENT
  Sex: Male
  Weight: 81.179 kg

DRUGS (3)
  1. BACLOFEN [Suspect]
     Active Substance: BACLOFEN
     Indication: Product used for unknown indication
     Dosage: 100 MCG/DAY
     Route: 037
  2. BACLOFEN [Suspect]
     Active Substance: BACLOFEN
     Dosage: 200 MCG/DAY
     Route: 037
  3. BACLOFEN [Suspect]
     Active Substance: BACLOFEN
     Indication: Product used for unknown indication
     Dosage: UNK
     Route: 048

REACTIONS (3)
  - Device breakage [Unknown]
  - Drug withdrawal syndrome [Recovered/Resolved]
  - Accidental overdose [Unknown]
